FAERS Safety Report 7776830-5 (Version None)
Quarter: 2011Q3

REPORT INFORMATION
  Report Type: 
  Country: None (occurrence: None)
  Receive Date: 20110926
  Receipt Date: 20110920
  Transmission Date: 20111222
  Serious: Yes (Hospitalization)
  Sender: FDA-Public Use
  Company Number: JP-B.I. PHARMACEUTICALS,INC./RIDGEFIELD-2011-BP-14016NB

PATIENT
  Sex: Female
  Weight: 52.7 kg

DRUGS (3)
  1. WARFARIN SODIUM [Suspect]
     Route: 065
  2. VERAPAMIL HCL [Suspect]
     Dosage: 120 MG
     Route: 048
  3. PRADAXA [Suspect]
     Indication: CEREBRAL INFARCTION
     Dosage: 220 MG
     Route: 048

REACTIONS (2)
  - CEREBRAL INFARCTION [None]
  - INTERNATIONAL NORMALISED RATIO INCREASED [None]
